FAERS Safety Report 15492198 (Version 1)
Quarter: 2018Q4

REPORT INFORMATION
  Report Type: Spontaneous
  Country: ES (occurrence: ES)
  Receive Date: 20181012
  Receipt Date: 20181012
  Transmission Date: 20190205
  Serious: No
  Sender: FDA-Public Use
  Company Number: ES-IPSEN BIOPHARMACEUTICALS, INC.-2018-12366

PATIENT
  Sex: Female

DRUGS (1)
  1. DECAPEPTYL DIARIO 0.1 MG [Suspect]
     Active Substance: TRIPTORELIN ACETATE
     Indication: PRODUCT USED FOR UNKNOWN INDICATION
     Dosage: 0.1 MG
     Route: 065

REACTIONS (2)
  - Drug ineffective [Unknown]
  - Anovulatory cycle [Unknown]
